FAERS Safety Report 24392055 (Version 1)
Quarter: 2024Q4

REPORT INFORMATION
  Report Type: Spontaneous
  Country: HU (occurrence: HU)
  Receive Date: 20241003
  Receipt Date: 20241003
  Transmission Date: 20250115
  Serious: Yes (Hospitalization)
  Sender: PFIZER
  Company Number: HU-PFIZER INC-PV202400118596

PATIENT
  Age: 65 Year
  Sex: Male
  Weight: 178 kg

DRUGS (3)
  1. IBRANCE [Suspect]
     Active Substance: PALBOCICLIB
     Indication: Breast cancer male
     Dosage: 125 MG FRQ: TILL 3 WEEKS
     Route: 048
     Dates: start: 202204, end: 202408
  2. GOSERELIN [Concomitant]
     Active Substance: GOSERELIN
     Dosage: 3.6 MG EVERY 28 DAYS
  3. LETROZOLE [Concomitant]
     Active Substance: LETROZOLE
     Dosage: 2.5 MG

REACTIONS (3)
  - Liver function test abnormal [Recovered/Resolved]
  - Off label use [Unknown]
  - Product use issue [Unknown]

NARRATIVE: CASE EVENT DATE: 20220401
